FAERS Safety Report 16568853 (Version 1)
Quarter: 2019Q3

REPORT INFORMATION
  Report Type: Spontaneous
  Country: DE (occurrence: DE)
  Receive Date: 20190713
  Receipt Date: 20190713
  Transmission Date: 20191004
  Serious: Yes (Hospitalization)
  Sender: FDA-Public Use
  Company Number: DE-TEVA-2019-DE-1076051

PATIENT
  Age: 80 Year
  Sex: Male
  Weight: 75 kg

DRUGS (8)
  1. LERCANIDIPIN [Suspect]
     Active Substance: LERCANIDIPINE
     Dosage: 10 MG, 1-0-1,
     Route: 048
  2. TAMSULOSIN [Concomitant]
     Active Substance: TAMSULOSIN
     Dosage: 0.4 MG, 1-0-0,
     Route: 048
  3. GLYCEROLTRINITRAT [Concomitant]
     Active Substance: NITROGLYCERIN
     Dosage: 0.4 MG, B.B., SPRAY
     Route: 048
  4. DABIGATRAN [Concomitant]
     Active Substance: DABIGATRAN
     Dosage: 110 MG, 1-0-1, KAPSELN
     Route: 048
  5. HYDROCHLOROTHIAZID [Suspect]
     Active Substance: HYDROCHLOROTHIAZIDE
     Route: 048
  6. ATORVASTATIN [Suspect]
     Active Substance: ATORVASTATIN
  7. METOPROLOL. [Suspect]
     Active Substance: METOPROLOL
     Dosage: 95 MG, 1-0-1,
     Route: 048
  8. TELMISARTAN. [Concomitant]
     Active Substance: TELMISARTAN
     Dosage: 40 MG, 1-0-1,
     Route: 048

REACTIONS (3)
  - Tachycardia [Unknown]
  - Hypertension [Unknown]
  - Dizziness [Unknown]
